FAERS Safety Report 5081728-X (Version None)
Quarter: 2006Q3

REPORT INFORMATION
  Report Type: 
  Country: None (occurrence: None)
  Receive Date: 20060811
  Receipt Date: 20060802
  Transmission Date: 20061208
  Serious: Yes (Hospitalization)
  Sender: FDA-Public Use
  Company Number: 228230

PATIENT
  Age: 86 Year
  Sex: Female

DRUGS (1)
  1. GRTPA (ALTEPLASE) PWDR + SOLVENT, INFUSION SOLN [Suspect]
     Indication: CEREBRAL INFARCTION
     Dosage: SINGLE, INTRAVENOUS
     Route: 042
     Dates: start: 20060722, end: 20060722

REACTIONS (1)
  - CEREBRAL HYPERPERFUSION SYNDROME [None]
